FAERS Safety Report 20797651 (Version 1)
Quarter: 2022Q2

REPORT INFORMATION
  Report Type: Spontaneous
  Country: US (occurrence: US)
  Receive Date: 20220506
  Receipt Date: 20220506
  Transmission Date: 20220720
  Serious: No
  Sender: FDA-Public Use
  Company Number: US-PFIZER INC-202200469969

PATIENT
  Age: 69 Year
  Sex: Female

DRUGS (4)
  1. NEOSPORIN [Suspect]
     Active Substance: BACITRACIN ZINC\NEOMYCIN SULFATE\POLYMYXIN B SULFATE
     Dosage: UNK
  2. AMOXICILLIN [Suspect]
     Active Substance: AMOXICILLIN
     Dosage: UNK
  3. CARVEDILOL [Suspect]
     Active Substance: CARVEDILOL
     Dosage: UNK
  4. CLOPIDOGREL [Suspect]
     Active Substance: CLOPIDOGREL BISULFATE
     Dosage: UNK

REACTIONS (1)
  - Drug hypersensitivity [Unknown]
